FAERS Safety Report 7377638-5 (Version None)
Quarter: 2011Q1

REPORT INFORMATION
  Report Type: 
  Country: None (occurrence: None)
  Receive Date: 20110316
  Receipt Date: 20110309
  Transmission Date: 20110831
  Serious: Yes (Hospitalization)
  Sender: FDA-Public Use
  Company Number: DSU-2011-01749

PATIENT
  Age: 86 Year
  Sex: Male
  Weight: 83.4619 kg

DRUGS (16)
  1. METAMUCIL (PSYLLIUM HYDROPHILIC MUCILLOID) (CAPSULE) (PSYLLIUM HYDROPH [Suspect]
     Indication: DIARRHOEA
     Dosage: PER ORAL
     Route: 048
     Dates: start: 20100901, end: 20100901
  2. METAMUCIL (PSYLLIUM HYDROPHILIC MUCILLOID) (CAPSULE) (PSYLLIUM HYDROPH [Suspect]
     Indication: DIARRHOEA
     Dosage: PER ORAL
     Route: 048
     Dates: start: 20110301
  3. PREVACID [Concomitant]
  4. SINEMET [Concomitant]
  5. LIDODERM PATCH (LIDOCAINE) (TRANSDERMAL PATCH) (LIDOCAINE) [Concomitant]
  6. POTASSIUM CHLORIDE [Concomitant]
  7. FUROSEMIDE [Concomitant]
  8. ISOSORBIDE MONONITRATE [Concomitant]
  9. METOPROLOL SUCCINATE ER (METOPROLOL SUCCINATE) [Concomitant]
  10. VASOTEC [Concomitant]
  11. METOLAZONE [Concomitant]
  12. WELCHOL [Suspect]
     Indication: HYPERLIPIDAEMIA
     Dosage: 3750 MG (1875 MG, BID), PER ORAL
     Route: 048
     Dates: start: 20080101
  13. WELCHOL [Suspect]
     Indication: DIARRHOEA
     Dosage: 3750 MG (1875 MG, BID), PER ORAL
     Route: 048
     Dates: start: 20080101
  14. FLOMAX [Concomitant]
  15. COMBIVENT (IPRATROPIUM BROMIDE, SALBUTAMOL SULFATE) (INHALATION VAPOUR [Concomitant]
  16. WARFARIN (WARFARIN) [Concomitant]

REACTIONS (3)
  - CONSTIPATION [None]
  - COLONIC POLYP [None]
  - FREQUENT BOWEL MOVEMENTS [None]
